FAERS Safety Report 11905974 (Version 1)
Quarter: 2016Q1

REPORT INFORMATION
  Report Type: Spontaneous
  Country: US (occurrence: None)
  Receive Date: 20160108
  Receipt Date: 20160108
  Transmission Date: 20160526
  Serious: Yes (Other)
  Sender: FDA-Public Use
  Company Number: None

PATIENT
  Age: 40 Year
  Sex: Female
  Weight: 49.9 kg

DRUGS (2)
  1. DULCOLAX NOS [Suspect]
     Active Substance: BISACODYL OR DOCUSATE SODIUM
     Indication: CONSTIPATION
     Dosage: TAKEN BY MOUTH
     Route: 048
     Dates: start: 20160102, end: 20160107
  2. LEVOTHYROXI N [Concomitant]

REACTIONS (5)
  - Chest pain [None]
  - Anxiety [None]
  - Arrhythmia [None]
  - Heart rate irregular [None]
  - Stress [None]

NARRATIVE: CASE EVENT DATE: 20160107
